FAERS Safety Report 6587784-1 (Version None)
Quarter: 2010Q1

REPORT INFORMATION
  Report Type: 
  Country: None (occurrence: None)
  Receive Date: 20100218
  Receipt Date: 20100208
  Transmission Date: 20100710
  Serious: Yes (Hospitalization, Other)
  Sender: FDA-Public Use
  Company Number: PHHY2010US07658

PATIENT
  Sex: Female

DRUGS (6)
  1. ZOMETA [Suspect]
     Dosage: UNK
  2. OXYCODONE HCL [Concomitant]
  3. METHADONE HCL [Concomitant]
  4. NEURONTIN [Concomitant]
  5. CYMBALTA [Concomitant]
  6. DILADIN [Concomitant]

REACTIONS (3)
  - ORAL DISORDER [None]
  - ORAL SURGERY [None]
  - PELVIC NEOPLASM [None]
